FAERS Safety Report 9341817 (Version 1)
Quarter: 2013Q2

REPORT INFORMATION
  Report Type: Spontaneous
  Country: US (occurrence: None)
  Receive Date: 20130606
  Receipt Date: 20130606
  Transmission Date: 20140414
  Serious: Yes (Death)
  Sender: FDA-Public Use
  Company Number: ACET20130015

PATIENT
  Age: 17 Year
  Sex: Male
  Weight: 90 kg

DRUGS (1)
  1. Q-PAP [Suspect]
     Indication: PRODUCT USED FOR UNKNOWN INDICATION
     Route: 048

REACTIONS (6)
  - Hepatotoxicity [None]
  - Encephalopathy [None]
  - Coagulopathy [None]
  - Brain oedema [None]
  - Brain death [None]
  - Cerebral haemorrhage [None]
